FAERS Safety Report 18811284 (Version 2)
Quarter: 2025Q3

REPORT INFORMATION
  Report Type: Spontaneous
  Country: EU (occurrence: EU)
  Receive Date: 20210130
  Receipt Date: 20250717
  Transmission Date: 20251021
  Serious: Yes (Hospitalization, Other)
  Sender: AUROBINDO
  Company Number: EU-BEH-2013035164

PATIENT
  Age: 2 Year
  Sex: Female
  Weight: 12 kg

DRUGS (9)
  1. AMOXICILLIN [Suspect]
     Active Substance: AMOXICILLIN
     Indication: Viral infection
     Route: 048
     Dates: start: 20130305
  2. PRIVIGEN [Suspect]
     Active Substance: HUMAN IMMUNOGLOBULIN G
     Indication: Kawasaki^s disease
     Route: 042
     Dates: start: 20130308, end: 20130308
  3. PRIVIGEN [Suspect]
     Active Substance: HUMAN IMMUNOGLOBULIN G
     Route: 042
     Dates: start: 20130310, end: 20130310
  4. PRIVIGEN [Suspect]
     Active Substance: HUMAN IMMUNOGLOBULIN G
     Route: 042
  5. PRIVIGEN [Suspect]
     Active Substance: HUMAN IMMUNOGLOBULIN G
     Route: 042
  6. ASPIRIN [Concomitant]
     Active Substance: ASPIRIN
     Indication: Kawasaki^s disease
     Dosage: 250 MILLIGRAM
     Route: 048
     Dates: start: 20130308
  7. DOLIPRANE [Concomitant]
     Active Substance: ACETAMINOPHEN
     Indication: Pyrexia
     Dosage: 180 MILLIGRAM
     Route: 048
     Dates: start: 20130308
  8. OMEPRAZOLE [Concomitant]
     Active Substance: OMEPRAZOLE
     Indication: Prophylaxis
     Route: 048
     Dates: start: 20130308
  9. PANTOPRAZOLE [Concomitant]
     Active Substance: PANTOPRAZOLE
     Indication: Product used for unknown indication
     Route: 065
     Dates: start: 20130310

REACTIONS (7)
  - Haemolysis [Unknown]
  - Haemoglobin decreased [Recovered/Resolved]
  - Haemolytic anaemia [Recovered/Resolved]
  - Tachycardia [Unknown]
  - Pallor [Unknown]
  - Off label use [Unknown]
  - No adverse event [Unknown]

NARRATIVE: CASE EVENT DATE: 20130311
